FAERS Safety Report 8818201 (Version 1)
Quarter: 2012Q4

REPORT INFORMATION
  Report Type: 
  Country: US (occurrence: US)
  Receive Date: 20121001
  Receipt Date: 20121001
  Transmission Date: 20130627
  Serious: Yes (Hospitalization, Other)
  Sender: FDA-Public Use
  Company Number: US-PFIZER INC-2012239350

PATIENT
  Age: 63 Year
  Sex: Female
  Weight: 75.74 kg

DRUGS (3)
  1. SUTENT [Suspect]
     Indication: GASTROINTESTINAL STROMAL TUMOUR
     Dosage: 25 mg, 1x/day
     Dates: end: 20120911
  2. ASPIRIN [Concomitant]
     Dosage: UNK
  3. NORVASC [Concomitant]
     Dosage: UNK

REACTIONS (8)
  - Pancreatitis [Recovered/Resolved]
  - Renal failure acute [Recovering/Resolving]
  - Blood creatinine increased [Unknown]
  - Blood creatinine increased [Unknown]
  - Confusional state [Recovered/Resolved]
  - Skin hypopigmentation [Unknown]
  - Hallucination [Unknown]
  - Haemoglobin decreased [Unknown]
